FAERS Safety Report 17930105 (Version 1)
Quarter: 2020Q2

REPORT INFORMATION
  Report Type: Spontaneous
  Country: US (occurrence: US)
  Receive Date: 20200623
  Receipt Date: 20200623
  Transmission Date: 20200714
  Serious: Yes (Other)
  Sender: FDA-Public Use
  Company Number: None

PATIENT
  Age: 43 Year
  Weight: 56.25 kg

DRUGS (1)
  1. MORPHINE ER 30MG [Suspect]
     Active Substance: MORPHINE SULFATE
     Indication: SPINAL PAIN
     Dosage: ?          QUANTITY:60 TABLET(S);?
     Route: 048

REACTIONS (5)
  - Migraine [None]
  - Drug ineffective [None]
  - Product substitution issue [None]
  - Nausea [None]
  - Pain [None]

NARRATIVE: CASE EVENT DATE: 20200606
